FAERS Safety Report 5981550-3 (Version None)
Quarter: 2008Q4

REPORT INFORMATION
  Report Type: 
  Country: None (occurrence: None)
  Receive Date: 20081202
  Receipt Date: 20081119
  Transmission Date: 20090506
  Serious: Yes (Other)
  Sender: FDA-Public Use
  Company Number: SPV1-2008-02579

PATIENT
  Age: 16 Year
  Sex: Female
  Weight: 69.4 kg

DRUGS (7)
  1. ADDERALL XR 10 [Suspect]
     Indication: ATTENTION DEFICIT/HYPERACTIVITY DISORDER
     Dosage: 15 MG, 1X/DAY: QD, ORAL. 15 MG, 1X/DAY: QD, ORAL
     Route: 048
     Dates: start: 20081108, end: 20081111
  2. ADDERALL XR 10 [Suspect]
     Indication: ATTENTION DEFICIT/HYPERACTIVITY DISORDER
     Dosage: 15 MG, 1X/DAY: QD, ORAL. 15 MG, 1X/DAY: QD, ORAL
     Route: 048
     Dates: start: 20081115, end: 20081116
  3. VYVANSE [Concomitant]
  4. IBUPROFEN [Concomitant]
  5. ACETAMINOPHEN [Concomitant]
  6. CEFTIN (CEFUROXIME AXETEL) [Concomitant]
  7. GUAIFENESIN [Concomitant]

REACTIONS (4)
  - AGGRESSION [None]
  - BLOOD GLUCOSE DECREASED [None]
  - LOSS OF CONSCIOUSNESS [None]
  - UNEVALUABLE EVENT [None]
